FAERS Safety Report 9145406 (Version 2)
Quarter: 2013Q2

REPORT INFORMATION
  Report Type: Spontaneous
  Country: FR (occurrence: FR)
  Receive Date: 20130307
  Receipt Date: 20130625
  Transmission Date: 20140414
  Serious: Yes (Life-Threatening, Hospitalization)
  Sender: FDA-Public Use
  Company Number: FR-JNJFOC-20130215819

PATIENT
  Age: 64 Year
  Sex: Male

DRUGS (7)
  1. XARELTO [Suspect]
     Indication: CEREBROVASCULAR ACCIDENT
     Route: 048
     Dates: start: 20130208, end: 20130208
  2. XARELTO [Suspect]
     Indication: ATRIAL FIBRILLATION
     Route: 048
     Dates: start: 20130208, end: 20130208
  3. CORDARONE [Concomitant]
     Indication: CIRCULATORY COLLAPSE
     Route: 065
  4. SUXAMETHONIUM [Concomitant]
     Indication: ANAESTHESIA
     Route: 065
  5. PROPOFOL [Concomitant]
     Indication: ANAESTHESIA
     Route: 065
  6. AMLODIPINE [Concomitant]
     Indication: HYPERTENSION
     Route: 048
     Dates: start: 20130208
  7. SUFENTANIL [Concomitant]
     Indication: ANAESTHESIA
     Route: 065

REACTIONS (3)
  - Gastrointestinal haemorrhage [Recovering/Resolving]
  - Shock haemorrhagic [Recovering/Resolving]
  - Transfusion [Unknown]
